FAERS Safety Report 5853847-9 (Version None)
Quarter: 2008Q3

REPORT INFORMATION
  Report Type: 
  Country: None (occurrence: None)
  Receive Date: 20080822
  Receipt Date: 20080814
  Transmission Date: 20090109
  Serious: Yes (Other)
  Sender: FDA-Public Use
  Company Number: IT-JNJFOC-20080803828

PATIENT
  Age: 62 Year
  Sex: Female

DRUGS (9)
  1. DOXORUBICIN HCL [Suspect]
     Indication: OVARIAN CANCER
     Route: 042
  2. ENOXAPARIN SODIUM [Concomitant]
     Route: 058
  3. EPARGRISEOVIT [Concomitant]
     Route: 042
  4. SOLDESAM [Concomitant]
     Route: 042
  5. RANIDIL [Concomitant]
     Route: 042
  6. PERFALGAN [Concomitant]
     Route: 042
  7. NEXIUM [Concomitant]
     Route: 048
  8. TRAMADOL HCL [Concomitant]
     Route: 048
  9. TRAMADOL HCL [Concomitant]
     Route: 048

REACTIONS (4)
  - ANGIOEDEMA [None]
  - EYELID OEDEMA [None]
  - PALATAL OEDEMA [None]
  - SKIN TEST POSITIVE [None]
